FAERS Safety Report 23544997 (Version 1)
Quarter: 2024Q1

REPORT INFORMATION
  Report Type: Spontaneous
  Country: CN (occurrence: CN)
  Receive Date: 20240220
  Receipt Date: 20240220
  Transmission Date: 20240409
  Serious: Yes (Hospitalization, Other)
  Sender: FDA-Public Use
  Company Number: CN-JNJFOC-20240229806

PATIENT
  Age: 65 Year
  Sex: Female

DRUGS (1)
  1. OPSUMIT [Suspect]
     Active Substance: MACITENTAN
     Indication: Palpitations
     Route: 048
     Dates: start: 20231104, end: 20231226

REACTIONS (7)
  - Anaemia [Recovering/Resolving]
  - Pulmonary hypertension [Unknown]
  - Dizziness [Unknown]
  - Pallor [Unknown]
  - Atrial septal defect [Unknown]
  - Off label use [Unknown]
  - Treatment noncompliance [Unknown]

NARRATIVE: CASE EVENT DATE: 20231226
